FAERS Safety Report 25974471 (Version 2)
Quarter: 2025Q4

REPORT INFORMATION
  Report Type: Report from Study
  Country: US (occurrence: US)
  Receive Date: 20251029
  Receipt Date: 20251121
  Transmission Date: 20260118
  Serious: Yes (Death, Other)
  Sender: ACADIA PHARMACEUTICALS
  Company Number: US-ACADIA PHARMACEUTICALS INC.-ACA-2025-PIM-011621

PATIENT
  Age: 80 Year
  Sex: Female

DRUGS (4)
  1. NUPLAZID [Suspect]
     Active Substance: PIMAVANSERIN TARTRATE
     Indication: Parkinson^s disease
     Dosage: 34 MILLIGRAM, QD
     Route: 048
     Dates: start: 20251015, end: 20251017
  2. KEPPRA [Concomitant]
     Active Substance: LEVETIRACETAM
     Dosage: UNK
  3. VALIUM [Concomitant]
     Active Substance: DIAZEPAM
     Dosage: UNK
  4. MORPHINE [Concomitant]
     Active Substance: MORPHINE
     Dosage: UNK

REACTIONS (4)
  - Pneumonia [Fatal]
  - Illness [Fatal]
  - Asthenia [Fatal]
  - Fall [Fatal]

NARRATIVE: CASE EVENT DATE: 20251017
